FAERS Safety Report 4364024-5 (Version None)
Quarter: 2004Q2

REPORT INFORMATION
  Report Type: 
  Country: None (occurrence: None)
  Receive Date: 20040525
  Receipt Date: 20040514
  Transmission Date: 20050107
  Serious: Yes (Life-Threatening, Hospitalization)
  Sender: FDA-Public Use
  Company Number: 200411703JP

PATIENT
  Age: 88 Year
  Sex: Male

DRUGS (6)
  1. KETEK [Suspect]
     Indication: BRONCHITIS ACUTE
     Route: 048
     Dates: start: 20040323, end: 20040325
  2. BAYLOTENSIN [Suspect]
     Indication: HYPERTENSION
     Route: 048
     Dates: start: 20040329, end: 20040330
  3. CEFOTIAM HYDROCHLORIDE [Concomitant]
     Indication: BRONCHITIS ACUTE
     Route: 048
     Dates: start: 20040320, end: 20040323
  4. NIFLAN [Concomitant]
     Indication: BRONCHITIS ACUTE
     Route: 048
     Dates: start: 20040320, end: 20040323
  5. DIHYDROCODEINE BITARTRATE INJ [Concomitant]
     Indication: BRONCHITIS ACUTE
     Dates: start: 20040320, end: 20040323
  6. BLOPRESS [Concomitant]
     Indication: HYPERTENSION
     Route: 048
     Dates: start: 20040329, end: 20040330

REACTIONS (6)
  - BLOOD PRESSURE SYSTOLIC INCREASED [None]
  - EXTRASYSTOLES [None]
  - OESOPHAGEAL HAEMORRHAGE [None]
  - VENTRICULAR HYPERTROPHY [None]
  - VISUAL ACUITY REDUCED [None]
  - VITREOUS FLOATERS [None]
